FAERS Safety Report 6687099-7 (Version None)
Quarter: 2010Q2

REPORT INFORMATION
  Report Type: 
  Country: None (occurrence: None)
  Receive Date: 20100419
  Receipt Date: 20100415
  Transmission Date: 20101027
  Serious: Yes (Other)
  Sender: FDA-Public Use
  Company Number: US-ALLERGAN-1004953US

PATIENT
  Age: 62 Year
  Sex: Female

DRUGS (1)
  1. ACUVAIL [Suspect]
     Indication: POSTOPERATIVE CARE
     Dosage: 2 GTT, UNK
     Dates: start: 20100311, end: 20100312

REACTIONS (1)
  - ULCERATIVE KERATITIS [None]
